FAERS Safety Report 15783845 (Version 2)
Quarter: 2020Q2

REPORT INFORMATION
  Report Type: Spontaneous
  Country: US (occurrence: US)
  Receive Date: 20190102
  Receipt Date: 20200605
  Transmission Date: 20200713
  Serious: Yes (Hospitalization, Other)
  Sender: FDA-Public Use
  Company Number: US-009507513-1901USA000202

PATIENT
  Sex: Female
  Weight: 81.65 kg

DRUGS (1)
  1. JANUVIA [Suspect]
     Active Substance: SITAGLIPTIN PHOSPHATE
     Indication: TYPE 2 DIABETES MELLITUS
     Dosage: 1 TABLET BY MOUTH DAILY
     Route: 048
     Dates: start: 20151222, end: 201701

REACTIONS (17)
  - Thrombocytopenia [Unknown]
  - Mixed anxiety and depressive disorder [Unknown]
  - Gastrointestinal disorder [Unknown]
  - Pancreatic carcinoma [Unknown]
  - Limb injury [Unknown]
  - Arthritis [Unknown]
  - Oedema peripheral [Unknown]
  - Overweight [Unknown]
  - Neuropathy peripheral [Unknown]
  - Insomnia [Unknown]
  - Myalgia [Unknown]
  - Pain [Recovering/Resolving]
  - Hyperlipidaemia [Unknown]
  - Pancreatitis acute [Unknown]
  - Essential hypertension [Unknown]
  - Fatigue [Unknown]
  - Back pain [Recovering/Resolving]

NARRATIVE: CASE EVENT DATE: 2017
